FAERS Safety Report 9819358 (Version 1)
Quarter: 2014Q1

REPORT INFORMATION
  Report Type: Spontaneous
  Country: HN (occurrence: HN)
  Receive Date: 20140115
  Receipt Date: 20140115
  Transmission Date: 20141002
  Serious: Yes (Death)
  Sender: FDA-Public Use
  Company Number: HN-PFIZER INC-2014010963

PATIENT
  Age: 93 Year
  Sex: Female

DRUGS (3)
  1. LIPITOR [Suspect]
     Dosage: 40 MG, DAILY
     Route: 048
     Dates: start: 199701
  2. AMARYL [Concomitant]
     Dosage: UNK
     Dates: start: 19990101
  3. CORDARONE [Concomitant]
     Dosage: UNK

REACTIONS (1)
  - Cardio-respiratory arrest [Fatal]
